FAERS Safety Report 12296351 (Version 1)
Quarter: 2016Q2

REPORT INFORMATION
  Report Type: Spontaneous
  Country: JP (occurrence: JP)
  Receive Date: 20160422
  Receipt Date: 20160422
  Transmission Date: 20160815
  Serious: Yes (Other)
  Sender: FDA-Public Use
  Company Number: JP-TEVA-652597ISR

PATIENT
  Age: 78 Year
  Sex: Male
  Weight: 62.7 kg

DRUGS (9)
  1. PEMETREXED [Suspect]
     Active Substance: PEMETREXED
     Indication: PLEURAL MESOTHELIOMA MALIGNANT
     Dosage: 500 MG/M2 ON DAY1 REPEATED AT EVERY 3-4 WEEKS
     Route: 065
     Dates: start: 20070315
  2. GEMCITABINE [Concomitant]
     Active Substance: GEMCITABINE\GEMCITABINE HYDROCHLORIDE
     Indication: PLEURAL MESOTHELIOMA MALIGNANT
     Dosage: 1000 MG/M2 ON DAY 1, 8 AND DAY15; REPEATED EVERY 4 WEEKS
     Route: 065
     Dates: start: 20080417
  3. CISPLATIN. [Suspect]
     Active Substance: CISPLATIN
     Indication: PLEURAL MESOTHELIOMA MALIGNANT
     Dosage: 60 MG/M2 ON DAY1 REPEATED AT EVERY 3-4 WEEKS
     Route: 065
     Dates: start: 20070315
  4. PEMETREXED [Suspect]
     Active Substance: PEMETREXED
     Indication: PLEURAL MESOTHELIOMA MALIGNANT
     Route: 065
     Dates: start: 20080825
  5. GIMERACIL, OTERACIL, TEGAFUR [Suspect]
     Active Substance: GIMERACIL\OTERACIL\TEGAFUR
     Indication: PLEURAL MESOTHELIOMA MALIGNANT
     Dosage: 100 MILLIGRAM DAILY;
     Route: 065
     Dates: start: 20080711
  6. CISPLATIN. [Suspect]
     Active Substance: CISPLATIN
     Indication: PLEURAL MESOTHELIOMA MALIGNANT
     Route: 065
     Dates: start: 20080825
  7. VINORELBINE [Concomitant]
     Active Substance: VINORELBINE\VINORELBINE TARTRATE
     Indication: PLEURAL MESOTHELIOMA MALIGNANT
     Dosage: 25 MG/M2 ON DAY 1, 8 AND DAY15; REPEATED EVERY 4 WEEKS
     Route: 065
     Dates: start: 20080221
  8. CISPLATIN. [Suspect]
     Active Substance: CISPLATIN
     Indication: PLEURAL MESOTHELIOMA MALIGNANT
     Route: 065
  9. FOLIC ACID. [Concomitant]
     Active Substance: FOLIC ACID
     Route: 065

REACTIONS (8)
  - Vomiting [Unknown]
  - Decreased appetite [Unknown]
  - Leukopenia [Unknown]
  - Nausea [Unknown]
  - Thrombocytopenia [Unknown]
  - Neutropenia [Unknown]
  - Enteritis [Unknown]
  - Hiccups [Unknown]
